FAERS Safety Report 7337722-9 (Version None)
Quarter: 2011Q1

REPORT INFORMATION
  Report Type: 
  Country: None (occurrence: None)
  Receive Date: 20110303
  Receipt Date: 20110303
  Transmission Date: 20110831
  Serious: No
  Sender: FDA-Public Use
  Company Number: None

PATIENT
  Sex: Female

DRUGS (2)
  1. ENBREL [Suspect]
     Indication: RHEUMATOID ARTHRITIS
     Dosage: 25MG TWICE WEEKLY SUBCUTANEOUSLY
     Route: 058
     Dates: start: 20100724
  2. ENBREL [Suspect]
     Indication: RHEUMATOID ARTHRITIS
     Dosage: 25MG TWICE WEEKLY SUBCUTANEOUSLY
     Route: 058
     Dates: start: 20100211, end: 20100401

REACTIONS (1)
  - HOT FLUSH [None]
